FAERS Safety Report 9921423 (Version 1)
Quarter: 2014Q1

REPORT INFORMATION
  Report Type: Spontaneous
  Country: US (occurrence: None)
  Receive Date: 20140221
  Receipt Date: 20140221
  Transmission Date: 20141002
  Serious: Yes (Other)
  Sender: FDA-Public Use
  Company Number: None

PATIENT
  Sex: 0

DRUGS (1)
  1. CLONAZEPAM [Suspect]
     Dates: start: 201401

REACTIONS (5)
  - Nausea [None]
  - Renal pain [None]
  - Urinary tract infection [None]
  - Blood ketone body increased [None]
  - Product label issue [None]
